FAERS Safety Report 17306120 (Version 1)
Quarter: 2020Q1

REPORT INFORMATION
  Report Type: Other
  Country: GB (occurrence: GB)
  Receive Date: 20200123
  Receipt Date: 20200123
  Transmission Date: 20200409
  Serious: Yes (Hospitalization, Congenital Anomaly)
  Sender: FDA-Public Use
  Company Number: GB-EMCURE PHARMACEUTICALS LTD-2019-EPL-1316

PATIENT

DRUGS (11)
  1. FLUOXETINE [Suspect]
     Active Substance: FLUOXETINE HYDROCHLORIDE
     Indication: ANXIETY
     Dosage: 60 MILLIGRAM, DAILY (REDUCED TO 20MG DAILY WHEN PREGNANCY CONFIRMED, CUMULATIVE DOSE77942.5 MG)
     Route: 064
     Dates: start: 20150416
  2. FERROUS FUMARATE [Concomitant]
     Active Substance: FERROUS FUMARATE
     Dosage: 630 MILLIGRAM, DAILY  (28 DAYS), (CUMULATIVE DOSE- 51056.25 MG)
     Route: 064
     Dates: start: 20180816
  3. INFLUENZA VIRUS [Concomitant]
     Active Substance: INFLUENZA VIRUS VACCINE
     Route: 064
     Dates: start: 20181213, end: 20181213
  4. FLUOXETINE [Suspect]
     Active Substance: FLUOXETINE HYDROCHLORIDE
     Dosage: 20 MILLIGRAM,DAILY(REDUCED TO 20MG DAILY WHEN PREGNANCY CONFIRMED, CUMULATIVE DOSE 1620.83 MG)
     Route: 064
     Dates: start: 20180816
  5. FOLIC ACID. [Concomitant]
     Active Substance: FOLIC ACID
     Dosage: 5 MILLIGRAM, DAILY
     Route: 064
  6. DIPHTHERIA,PERTUSSIS,TETANUS,POLIOMYELIT [Concomitant]
     Route: 064
     Dates: start: 20181213, end: 20181213
  7. PROPRANOLOL [Suspect]
     Active Substance: PROPRANOLOL HYDROCHLORIDE
     Indication: ANXIETY
     Dosage: 120 MILLIGRAM, DAILY PRN (CUMULATIVE DOSE- 155885 MG))
     Route: 064
     Dates: start: 20150416
  8. PROPRANOLOL [Suspect]
     Active Substance: PROPRANOLOL HYDROCHLORIDE
     Dosage: 40 MILLIGRAM,DAILY(REDUCED TO 40MG DAILY WHEN PREGNANCY CONFIRMED, CUMULATIVE DOSE-3241.6 MG)
     Route: 064
     Dates: start: 20180816
  9. FERROUS FUMARATE [Concomitant]
     Active Substance: FERROUS FUMARATE
     Dosage: 915 MILLIGRAM, DAILY (100), (CUMULATIVE DOSE- 73200 MG)
     Route: 064
     Dates: start: 20190124
  10. VITAMINS NOS [Concomitant]
     Active Substance: VITAMINS
     Route: 064
     Dates: start: 20180810
  11. COLECALCIFEROL [Concomitant]
     Active Substance: CHOLECALCIFEROL
     Dosage: 800 INTERNATIONAL UNIT, DAILY (60 DAYS)
     Route: 064

REACTIONS (3)
  - Fallot^s tetralogy [Not Recovered/Not Resolved]
  - Foetal exposure during pregnancy [Unknown]
  - Right aortic arch [Not Recovered/Not Resolved]

NARRATIVE: CASE EVENT DATE: 20181105
